FAERS Safety Report 5597376-9 (Version None)
Quarter: 2007Q4

REPORT INFORMATION
  Report Type: 
  Country: None (occurrence: None)
  Receive Date: 20071221
  Receipt Date: 20070914
  Transmission Date: 20080405
  Serious: No
  Sender: FDA-Public Use
  Company Number: SPV1-2007-04177

PATIENT
  Age: 5 Year
  Sex: Male
  Weight: 19.5 kg

DRUGS (2)
  1. VYVANSE [Suspect]
     Indication: ATTENTION DEFICIT/HYPERACTIVITY DISORDER
     Dosage: 30 MG, 1X/DAY:QD, ORAL
     Route: 048
     Dates: start: 20070907, end: 20070907
  2. ZYRTEC [Concomitant]

REACTIONS (7)
  - AGITATION [None]
  - DYSPNOEA [None]
  - HEART RATE INCREASED [None]
  - HYPOTENSION [None]
  - LOGORRHOEA [None]
  - NERVOUSNESS [None]
  - OFF LABEL USE [None]
